FAERS Safety Report 7245353-4 (Version None)
Quarter: 2011Q1

REPORT INFORMATION
  Report Type: 
  Country: None (occurrence: None)
  Receive Date: 20110126
  Receipt Date: 20110119
  Transmission Date: 20110831
  Serious: Yes (Other)
  Sender: FDA-Public Use
  Company Number: US-US-EMD SERONO, INC.-232375J09USA

PATIENT
  Sex: Female
  Weight: 79 kg

DRUGS (2)
  1. REBIF [Suspect]
     Indication: MULTIPLE SCLEROSIS
     Route: 058
     Dates: start: 20080205, end: 20100401
  2. UNSPECIFIED MEDICATIONS [Concomitant]

REACTIONS (1)
  - THYROID CANCER [None]
